FAERS Safety Report 9938502 (Version 4)
Quarter: 2014Q3

REPORT INFORMATION
  Report Type: Spontaneous
  Country: US (occurrence: US)
  Receive Date: 20140303
  Receipt Date: 20140701
  Transmission Date: 20150326
  Serious: Yes (Hospitalization, Other)
  Sender: FDA-Public Use
  Company Number: US-009507513-1402USA013670

PATIENT
  Sex: Male
  Weight: 118.82 kg

DRUGS (3)
  1. VICTOZA [Suspect]
     Active Substance: LIRAGLUTIDE
     Indication: TYPE 2 DIABETES MELLITUS
     Dosage: 0.6 MG, 0.1 UNK
     Dates: start: 20120410, end: 20130926
  2. BYETTA [Suspect]
     Active Substance: EXENATIDE
     Indication: TYPE 2 DIABETES MELLITUS
     Dosage: 5 MICROGRAM, 0.02, 12 UNITS QD, UNK
     Dates: start: 20091029, end: 20120410
  3. JANUVIA [Suspect]
     Active Substance: SITAGLIPTIN PHOSPHATE
     Indication: TYPE 2 DIABETES MELLITUS
     Dosage: 100 MG, UNK
     Route: 048
     Dates: end: 20090330

REACTIONS (39)
  - Hypokalaemia [Unknown]
  - Kidney infection [Unknown]
  - Renal failure acute [Unknown]
  - Osteoarthritis [Unknown]
  - Immune system disorder [Unknown]
  - Hepatic cyst [Unknown]
  - Sinus bradycardia [Unknown]
  - Adenocarcinoma pancreas [Unknown]
  - Cholecystectomy [Unknown]
  - Postoperative wound infection [Unknown]
  - Klebsiella infection [Unknown]
  - Wound infection staphylococcal [Unknown]
  - Hyperlipidaemia [Unknown]
  - Cholesterosis [Unknown]
  - Wrist fracture [Unknown]
  - Essential hypertension [Not Recovered/Not Resolved]
  - Benign prostatic hyperplasia [Unknown]
  - Cholecystitis chronic [Not Recovered/Not Resolved]
  - Bone graft [Unknown]
  - Splenectomy [Unknown]
  - Pancreatic mass [Unknown]
  - Pancreatic neuroendocrine tumour [Unknown]
  - Road traffic accident [Unknown]
  - Abnormal loss of weight [Unknown]
  - Hypoaesthesia [Unknown]
  - Pancreatectomy [Unknown]
  - Leukocytosis [Unknown]
  - Cholelithiasis [Unknown]
  - Pancreatic neoplasm [Unknown]
  - Pancreatic duct dilatation [Unknown]
  - Wrist surgery [Unknown]
  - Tonsillectomy [Unknown]
  - Wrist surgery [Unknown]
  - Renal tubular necrosis [Recovering/Resolving]
  - Abscess drainage [Unknown]
  - Rib fracture [Unknown]
  - Pancreatic cyst [Unknown]
  - Adenoidectomy [Unknown]
  - Diabetes mellitus inadequate control [Recovering/Resolving]

NARRATIVE: CASE EVENT DATE: 200807
